FAERS Safety Report 4615751-3 (Version None)
Quarter: 2005Q2

REPORT INFORMATION
  Report Type: 
  Country: None (occurrence: None)
  Receive Date: 20050310
  Receipt Date: 20050105
  Transmission Date: 20051028
  Serious: No
  Sender: FDA-Public Use
  Company Number: A03200500024

PATIENT
  Age: 60 Year
  Sex: Female

DRUGS (3)
  1. ELOXATIN [Suspect]
     Indication: COLON CANCER
     Dosage: INTRAVENOUS NOS
     Route: 042
     Dates: start: 20040101, end: 20040101
  2. ELOXATIN [Suspect]
     Indication: METASTASES TO LIVER
     Dosage: INTRAVENOUS NOS
     Route: 042
     Dates: start: 20040101, end: 20040101
  3. ELOXATIN [Suspect]
     Indication: METASTASES TO LUNG
     Dosage: INTRAVENOUS NOS
     Route: 042
     Dates: start: 20040101, end: 20040101

REACTIONS (1)
  - MUSCLE SPASMS [None]
